FAERS Safety Report 4638759-0 (Version None)
Quarter: 2005Q2

REPORT INFORMATION
  Report Type: 
  Country: None (occurrence: None)
  Receive Date: 20050419
  Receipt Date: 20050411
  Transmission Date: 20051028
  Serious: Yes (Hospitalization)
  Sender: FDA-Public Use
  Company Number: 200513232GDDC

PATIENT
  Age: 63 Year
  Sex: Male

DRUGS (5)
  1. ARAVA [Suspect]
     Indication: RHEUMATOID ARTHRITIS
     Dosage: DOSE: UNK
     Route: 048
     Dates: start: 20040805, end: 20050118
  2. CORTANCYL [Concomitant]
     Indication: RHEUMATOID ARTHRITIS
     Route: 048
     Dates: start: 20010101, end: 20050101
  3. VOLTAREN [Concomitant]
     Dates: start: 20010101, end: 20050101
  4. CA++ [Concomitant]
     Dosage: DOSE: UNK
     Dates: start: 20010101, end: 20050101
  5. VITAMIN D3 [Concomitant]
     Dosage: DOSE: UNK
     Dates: start: 20010101, end: 20050101

REACTIONS (4)
  - ARRHYTHMIA [None]
  - ISCHAEMIC CARDIOMYOPATHY [None]
  - TACHYCARDIA [None]
  - VENTRICULAR DYSFUNCTION [None]
